FAERS Safety Report 7748319-0 (Version None)
Quarter: 2011Q3

REPORT INFORMATION
  Report Type: 
  Country: None (occurrence: None)
  Receive Date: 20110913
  Receipt Date: 20110907
  Transmission Date: 20111222
  Serious: Yes (Other)
  Sender: FDA-Public Use
  Company Number: PHHY2011CA80566

PATIENT
  Sex: Female

DRUGS (1)
  1. ZOLEDRONOC ACID [Suspect]
     Indication: OSTEOPOROSIS
     Dosage: UNK
     Route: 042
     Dates: start: 20110829

REACTIONS (6)
  - PAIN IN EXTREMITY [None]
  - ANGINA PECTORIS [None]
  - PALPITATIONS [None]
  - MALAISE [None]
  - ASTHENIA [None]
  - NAUSEA [None]
